FAERS Safety Report 6286238-X (Version None)
Quarter: 2009Q3

REPORT INFORMATION
  Report Type: 
  Country: None (occurrence: None)
  Receive Date: 20090728
  Receipt Date: 20090717
  Transmission Date: 20100115
  Serious: Yes (Other)
  Sender: FDA-Public Use
  Company Number: US-BAYER-200912180BCC

PATIENT
  Age: 35 Year
  Sex: Female

DRUGS (11)
  1. ASPIRIN [Suspect]
     Indication: UNEVALUABLE EVENT
     Route: 048
  2. CLOPIDOGREL [Suspect]
     Indication: STENT PLACEMENT
     Dosage: TOTAL DAILY DOSE: 75 MG  UNIT DOSE: 75 MG
     Route: 048
     Dates: start: 20071201
  3. RANOLAZINE [Concomitant]
     Route: 065
  4. OMEGA 3 ACID ETHYL ESTER [Concomitant]
     Route: 065
  5. ISOSORBIDE MONONITRATE [Concomitant]
     Route: 065
  6. SORBIC [Concomitant]
     Route: 065
  7. RAMIPRIL [Concomitant]
     Route: 065
  8. AMLODIPINE BESYLATE [Concomitant]
     Route: 065
  9. ROSUVASTATIN CALCIUM [Concomitant]
     Route: 065
  10. ARGININE [Concomitant]
     Route: 065
  11. RANITIDINE HYDROCHLORIDE [Concomitant]
     Route: 065

REACTIONS (4)
  - COLITIS [None]
  - CORONARY ARTERY OCCLUSION [None]
  - MICROANGIOPATHY [None]
  - MYOCARDIAL INFARCTION [None]
